FAERS Safety Report 17414770 (Version 4)
Quarter: 2020Q4

REPORT INFORMATION
  Report Type: Not Available
  Country: US (occurrence: US)
  Receive Date: 20200213
  Receipt Date: 20201023
  Transmission Date: 20210113
  Serious: Yes (Hospitalization)
  Sender: FDA-Public Use
  Company Number: US-NEUROCRINE BIOSCIENCES INC.-2020NBI00358

PATIENT
  Age: 78 Year
  Sex: Female

DRUGS (1)
  1. INGREZZA [Suspect]
     Active Substance: VALBENAZINE
     Indication: TARDIVE DYSKINESIA
     Route: 048
     Dates: start: 20191122

REACTIONS (5)
  - Product dose omission issue [Unknown]
  - Somnolence [Unknown]
  - Anxiety [Unknown]
  - Chest pain [Unknown]
  - Tremor [Unknown]
